FAERS Safety Report 4289228-1 (Version None)
Quarter: 2004Q1

REPORT INFORMATION
  Report Type: 
  Country: None (occurrence: None)
  Receive Date: 20040206
  Receipt Date: 20040128
  Transmission Date: 20041129
  Serious: Yes (Hospitalization)
  Sender: FDA-Public Use
  Company Number: 2004001800

PATIENT
  Age: 58 Year
  Sex: Male

DRUGS (12)
  1. FLUCONAZOLE [Suspect]
     Indication: PROPHYLACTIC CHEMOTHERAPY
     Dosage: 400 MG (BID), INTRAVENOUS
     Route: 042
     Dates: start: 20031024, end: 20031109
  2. CLAVENTIN (TICARCILLIN DISODIUM, CLAVULANATE POTASSIUM) [Suspect]
     Indication: PROPHYLACTIC CHEMOTHERAPY
     Dosage: 5 GRAM (DAILY), INTRAVENOUS
     Route: 042
     Dates: start: 20030919, end: 20031107
  3. AMPHOTERICIN B [Suspect]
     Indication: PROPHYLACTIC CHEMOTHERAPY
     Dosage: 500 MG (TID), INTRAVENOUS
     Route: 042
     Dates: start: 20031024, end: 20031108
  4. BACTRIM [Suspect]
     Indication: PROPHYLACTIC CHEMOTHERAPY
     Dosage: 10 ML (BID), INTRAVENOUS
     Route: 042
     Dates: start: 20030919, end: 20031106
  5. GANCICLOVIR SODIUM [Suspect]
     Indication: PROPHYLACTIC CHEMOTHERAPY
     Dosage: 200 MG (DAILY), INTRAVENOUS
     Route: 042
     Dates: start: 20031024, end: 20031106
  6. MYCOPHENOLATE MOFETIL (MYCOPHENOLATE MOFETIL) [Suspect]
     Indication: PROPHYLACTIC CHEMOTHERAPY
     Dosage: 500 MG (DAILY), INTRAVENOUS
     Route: 042
     Dates: start: 20031024, end: 20031106
  7. VANCOMYCIN [Concomitant]
  8. TACROLIMUS (TACROLIMUS) [Concomitant]
  9. PREDNISOLOLNE (PREDNISOLONE) [Concomitant]
  10. CIPROFLOXACIN [Concomitant]
  11. NICARDIPINE (NICARDIPINE) [Concomitant]
  12. FUROSEMIDE [Concomitant]

REACTIONS (1)
  - BONE MARROW DEPRESSION [None]
